FAERS Safety Report 8003239-1 (Version None)
Quarter: 2011Q4

REPORT INFORMATION
  Report Type: 
  Country: None (occurrence: None)
  Receive Date: 20111222
  Receipt Date: 20111216
  Transmission Date: 20120403
  Serious: Yes (Death, Hospitalization, Other)
  Sender: FDA-Public Use
  Company Number: PHHY2011EC19879

PATIENT
  Sex: Female

DRUGS (5)
  1. DIOVAN [Suspect]
     Indication: HYPERTENSION
     Dosage: 80 MG, QD
     Route: 048
     Dates: start: 20050101, end: 20090101
  2. DIGOXIN [Concomitant]
     Dosage: 0.25 MG, UNK
  3. CALCIBON (CALCIUM CITRATE) [Concomitant]
  4. DIOVAN [Suspect]
     Dosage: 160 MG, QD
     Route: 048
     Dates: start: 20100101, end: 20110901
  5. LASIX [Concomitant]
     Dosage: 0.25 MG, UNK

REACTIONS (13)
  - RENAL DISORDER [None]
  - LUNG DISORDER [None]
  - ABDOMINAL DISTENSION [None]
  - BREAST SWELLING [None]
  - EPISTAXIS [None]
  - HERPES VIRUS INFECTION [None]
  - EYE SWELLING [None]
  - LIVER DISORDER [None]
  - CARDIO-RESPIRATORY ARREST [None]
  - PNEUMONIA [None]
  - EYE PAIN [None]
  - ABDOMINAL PAIN UPPER [None]
  - BREAST PAIN [None]
